FAERS Safety Report 15139453 (Version 2)
Quarter: 2018Q3

REPORT INFORMATION
  Report Type: Spontaneous
  Country: DE (occurrence: DE)
  Receive Date: 20180713
  Receipt Date: 20180718
  Transmission Date: 20181010
  Serious: Yes (Other)
  Sender: FDA-Public Use
  Company Number: DE-MERCK KGAA-2051939

PATIENT
  Age: 55 Year
  Sex: Female

DRUGS (2)
  1. NOVOTHYROX [Suspect]
     Active Substance: LEVOTHYROXINE SODIUM
     Indication: AUTOIMMUNE THYROIDITIS
  2. NOVOTHYROX [Suspect]
     Active Substance: LEVOTHYROXINE SODIUM

REACTIONS (11)
  - Thyroid pain [None]
  - Alopecia [Not Recovered/Not Resolved]
  - Spider vein [None]
  - Diarrhoea [None]
  - Dyspnoea [Not Recovered/Not Resolved]
  - Onychoclasis [None]
  - Anti-thyroid antibody [None]
  - Thyroid mass [None]
  - Stress [Not Recovered/Not Resolved]
  - Tachycardia [Recovered/Resolved]
  - Weight decreased [None]

NARRATIVE: CASE EVENT DATE: 2016
